FAERS Safety Report 5682237-7 (Version None)
Quarter: 2008Q1

REPORT INFORMATION
  Report Type: 
  Country: None (occurrence: None)
  Receive Date: 20080325
  Receipt Date: 20080313
  Transmission Date: 20080703
  Serious: Yes (Other)
  Sender: FDA-Public Use
  Company Number: 2008S1003745

PATIENT
  Age: 42 Year
  Sex: Female

DRUGS (3)
  1. GLIMEPIRIDE [Suspect]
     Indication: OVERDOSE
     Dosage: ORAL;ONCE
     Route: 048
  2. ALCOHOL [Concomitant]
  3. METFORMIN HCL [Suspect]
     Dosage: 4250 MG
     Route: 048

REACTIONS (4)
  - HYPERVENTILATION [None]
  - INTENTIONAL OVERDOSE [None]
  - SUICIDE ATTEMPT [None]
  - VOMITING [None]
